FAERS Safety Report 14684330 (Version 2)
Quarter: 2018Q1

REPORT INFORMATION
  Report Type: Spontaneous
  Country: IL (occurrence: IL)
  Receive Date: 20180327
  Receipt Date: 20180330
  Transmission Date: 20180509
  Serious: Yes (Hospitalization, Other)
  Sender: FDA-Public Use
  Company Number: IL-ASTRAZENECA-2018SE37359

PATIENT
  Sex: Male

DRUGS (1)
  1. TAGRISSO [Suspect]
     Active Substance: OSIMERTINIB
     Dosage: 80.0MG UNKNOWN
     Route: 048
     Dates: start: 20180101

REACTIONS (4)
  - Drug ineffective [Unknown]
  - Respiratory disorder [Unknown]
  - Disease progression [Unknown]
  - Hyperventilation [Unknown]

NARRATIVE: CASE EVENT DATE: 20180101
